FAERS Safety Report 24549661 (Version 6)
Quarter: 2025Q1

REPORT INFORMATION
  Report Type: Spontaneous
  Country: RU (occurrence: RU)
  Receive Date: 20241025
  Receipt Date: 20250219
  Transmission Date: 20250408
  Serious: Yes (Hospitalization)
  Sender: SAREPTA THERAPEUTICS
  Company Number: RU-SAREPTA THERAPEUTICS INC.-SRP2024-005198

PATIENT

DRUGS (5)
  1. ELEVIDYS [Suspect]
     Active Substance: DELANDISTROGENE MOXEPARVOVEC-ROKL
     Indication: Duchenne muscular dystrophy
     Route: 042
     Dates: start: 20240917, end: 20240917
  2. CHOLECALCIFEROL [Concomitant]
     Active Substance: CHOLECALCIFEROL
     Indication: Product used for unknown indication
     Dosage: FREQ: ONE A DAY, IN THE MORNING, DURING OR IMMEDIATELY AFTER MEALS.
  3. PREDNISOLONE [Concomitant]
     Active Substance: PREDNISOLONE
     Indication: Product used for unknown indication
     Dosage: 4 TABLETS + 1/2 TABLET ONCE A DAY IN THE MORNING AFTER ALIGHT BREAKFAST
  4. NEXIUM [Concomitant]
     Active Substance: ESOMEPRAZOLE MAGNESIUM
     Indication: Product used for unknown indication
     Dosage: 10 MG IN THE MORNING 30 MINUTES BEFORE BREAKFAST
  5. Aluminium Phosphate (Phosphalugel) [Concomitant]
     Indication: Product used for unknown indication

REACTIONS (5)
  - Immune-mediated myositis [Recovering/Resolving]
  - Dilated cardiomyopathy [Unknown]
  - Cardiac failure congestive [Unknown]
  - COVID-19 [Recovered/Resolved]
  - Pneumonia [Recovered/Resolved]
